FAERS Safety Report 23796878 (Version 1)
Quarter: 2024Q2

REPORT INFORMATION
  Report Type: Spontaneous
  Country: FR (occurrence: FR)
  Receive Date: 20240430
  Receipt Date: 20240430
  Transmission Date: 20240716
  Serious: Yes (Hospitalization)
  Sender: FDA-Public Use
  Company Number: FR-AFSSAPS-MP2024000234

PATIENT
  Age: 39 Year
  Sex: Female
  Weight: 71 kg

DRUGS (17)
  1. VENLAFAXINE [Suspect]
     Active Substance: VENLAFAXINE HYDROCHLORIDE
     Indication: Neuralgia
     Dosage: 75 MILLIGRAM, DAILY, 1-0-0
     Route: 048
  2. VENLAFAXINE [Suspect]
     Active Substance: VENLAFAXINE HYDROCHLORIDE
     Dosage: 37.5 MILLIGRAM, DAILY, 0-0-1
     Route: 048
     Dates: start: 20231016
  3. AMITRIPTYLINE HYDROCHLORIDE [Suspect]
     Active Substance: AMITRIPTYLINE HYDROCHLORIDE
     Indication: Neuralgia
     Dosage: 40 MG/ML 0-10 DROPS-25 DROPS
     Route: 048
     Dates: start: 20221017
  4. NEFOPAM [Suspect]
     Active Substance: NEFOPAM
     Indication: Neuralgia
     Dosage: UNK
     Route: 048
  5. LEVOTHYROXINE [Concomitant]
     Active Substance: LEVOTHYROXINE\LEVOTHYROXINE SODIUM
     Indication: Hypothyroidism
     Dosage: 37.5 MILLIGRAM, DAILY, 1-0-0
     Route: 048
  6. FLUCONAZOLE [Concomitant]
     Active Substance: FLUCONAZOLE
     Indication: Oesophagitis
     Dosage: 200 MILLIGRAM, DAILY
     Route: 040
     Dates: start: 20231115, end: 20231206
  7. LEVOCARNITINE [Concomitant]
     Active Substance: LEVOCARNITINE
     Indication: Nutritional supplementation
     Dosage: 3 DOSAGE FORM, DAILY, 1-1-1
     Route: 048
  8. KETAMINE [Concomitant]
     Active Substance: KETAMINE
     Indication: Chronic inflammatory demyelinating polyradiculoneuropathy
     Dosage: 35 MILLIGRAM, IN TOTAL
     Route: 058
     Dates: start: 20240102, end: 20240102
  9. KETAMINE [Concomitant]
     Active Substance: KETAMINE
     Dosage: 25 MILLIGRAM, IN TOTAL
     Route: 058
     Dates: start: 20231128, end: 20231128
  10. MORPHINE SULFATE [Concomitant]
     Active Substance: MORPHINE SULFATE
     Indication: Pain
     Dosage: 1-4/D IF PAIN
     Route: 048
  11. PANTOPRAZOLE [Concomitant]
     Active Substance: PANTOPRAZOLE
     Indication: Oesophagitis
     Dosage: 200 MILLIGRAM, DAILY
     Route: 040
     Dates: start: 20231113, end: 20231120
  12. PANTOPRAZOLE [Concomitant]
     Active Substance: PANTOPRAZOLE
     Dosage: 40 MILLIGRAM, BID, 1-0-1
     Route: 048
     Dates: start: 20231121
  13. ENOXAPARIN [Concomitant]
     Active Substance: ENOXAPARIN
     Indication: Thrombosis prophylaxis
     Dosage: 4000 INTERNATIONAL UNIT, DAILY
     Route: 058
     Dates: start: 20240119, end: 20240203
  14. ENOXAPARIN [Concomitant]
     Active Substance: ENOXAPARIN
     Dosage: 4000 INTERNATIONAL UNIT, DAILY
     Route: 058
     Dates: start: 20231116, end: 20231121
  15. GABAPENTIN [Concomitant]
     Active Substance: GABAPENTIN
     Indication: Neuralgia
     Dosage: 300 MILLIGRAM, TID
     Route: 048
     Dates: start: 20231019, end: 20231105
  16. GABAPENTIN [Concomitant]
     Active Substance: GABAPENTIN
     Dosage: 1500 MILLIGRAM, DAILY, 2-1-2
     Route: 048
     Dates: start: 20231106
  17. ACETAMINOPHEN [Concomitant]
     Active Substance: ACETAMINOPHEN
     Indication: Pain
     Dosage: 1 GRAM, TID
     Route: 048

REACTIONS (1)
  - Angle closure glaucoma [Recovered/Resolved]

NARRATIVE: CASE EVENT DATE: 20240109
